FAERS Safety Report 18493479 (Version 2)
Quarter: 2020Q4

REPORT INFORMATION
  Report Type: Spontaneous
  Country: CA (occurrence: CA)
  Receive Date: 20201112
  Receipt Date: 20201120
  Transmission Date: 20210114
  Serious: Yes (Death)
  Sender: FDA-Public Use
  Company Number: CA-REGENERON PHARMACEUTICALS, INC.-2020-87759

PATIENT

DRUGS (1)
  1. EYLEA [Suspect]
     Active Substance: AFLIBERCEPT
     Indication: PRODUCT USED FOR UNKNOWN INDICATION
     Dosage: 2 MG, EVERY 8 TO 12 WEEKS, EYE UNKNOWN, TOTAL NUMBER OF DOSES UNKNOWN
     Route: 031
     Dates: start: 20171115, end: 202007

REACTIONS (1)
  - Death [Fatal]

NARRATIVE: CASE EVENT DATE: 20200920
